FAERS Safety Report 7623479-0 (Version None)
Quarter: 2011Q3

REPORT INFORMATION
  Report Type: 
  Country: None (occurrence: None)
  Receive Date: 20110720
  Receipt Date: 20110713
  Transmission Date: 20111222
  Serious: Yes (Death, Other)
  Sender: FDA-Public Use
  Company Number: PHHY2011GB56902

PATIENT
  Age: 66 Year
  Sex: Female

DRUGS (5)
  1. LITHIUM CARBONATE [Suspect]
     Dosage: 600 MG, UNK
  2. ZISPIN [Suspect]
     Dosage: 15 MG, UNK
  3. ZISPIN [Suspect]
     Dosage: 30 MG, UNK
  4. CITALOPRAM HYDROBROMIDE [Suspect]
     Dosage: 20 MG, UNK
  5. ACETYLSALICYLIC ACID SRT [Suspect]

REACTIONS (7)
  - CONDITION AGGRAVATED [None]
  - HISTRIONIC PERSONALITY DISORDER [None]
  - CONFUSIONAL STATE [None]
  - AGITATION [None]
  - OVERDOSE [None]
  - COMPLETED SUICIDE [None]
  - ANXIETY [None]
